FAERS Safety Report 14588905 (Version 1)
Quarter: 2018Q1

REPORT INFORMATION
  Report Type: Spontaneous
  Country: US (occurrence: US)
  Receive Date: 20180301
  Receipt Date: 20180301
  Transmission Date: 20180509
  Serious: Yes (Other)
  Sender: FDA-Public Use
  Company Number: US-THE PROACTIV LLC-2042835

PATIENT
  Age: 13 Year
  Sex: Female

DRUGS (3)
  1. PROACTIV REVITALIZING TONER (COSMETICS) [Suspect]
     Active Substance: COSMETICS
     Route: 061
  2. PROACTIV REPAIRING TREATMENT [Suspect]
     Active Substance: BENZOYL PEROXIDE
     Route: 061
  3. PROACTIV SOLUTION RENEWING CLEANSER [Suspect]
     Active Substance: BENZOYL PEROXIDE
     Indication: PRODUCT USED FOR UNKNOWN INDICATION
     Route: 061

REACTIONS (6)
  - Erythema [Recovered/Resolved]
  - Swelling face [Recovered/Resolved]
  - Dermatitis [Recovered/Resolved]
  - Loss of personal independence in daily activities [Recovered/Resolved]
  - Eye swelling [Recovered/Resolved]
  - Dyspnoea [Recovered/Resolved]
